FAERS Safety Report 8808848 (Version 2)
Quarter: 2012Q4

REPORT INFORMATION
  Report Type: 
  Country: US (occurrence: US)
  Receive Date: 20120926
  Receipt Date: 20121005
  Transmission Date: 20130627
  Serious: Yes (Other)
  Sender: FDA-Public Use
  Company Number: US-PFIZER INC-2012236051

PATIENT
  Sex: Male

DRUGS (2)
  1. AMIODARONE HCL [Suspect]
     Dosage: UNK
     Route: 048
     Dates: start: 201009
  2. AMIODARONE [Suspect]
     Dosage: UNK
     Route: 042
     Dates: start: 201009

REACTIONS (11)
  - Loss of consciousness [Unknown]
  - Myocardial infarction [Unknown]
  - Arteriospasm coronary [Unknown]
  - Coronary artery disease [Unknown]
  - Angiopathy [Unknown]
  - Vein disorder [Unknown]
  - Chest pain [Unknown]
  - Dyspnoea [Unknown]
  - Cardiac disorder [Unknown]
  - Photophobia [Unknown]
  - Dizziness [Unknown]
